FAERS Safety Report 7946659-3 (Version None)
Quarter: 2011Q4

REPORT INFORMATION
  Report Type: 
  Country: None (occurrence: None)
  Receive Date: 20111129
  Receipt Date: 20111121
  Transmission Date: 20120403
  Serious: Yes (Other)
  Sender: FDA-Public Use
  Company Number: US-PFIZER INC-2011285303

PATIENT
  Age: 15 Year
  Sex: Male
  Weight: 36.281 kg

DRUGS (4)
  1. IBUPROFEN (ADVIL) [Concomitant]
     Indication: PAIN
     Dosage: 200 MG, AS NEEDED
  2. BENEFIX [Suspect]
     Dosage: BEYOND DAY 10, AT 2 VIALS OF 1890 I.U. TOGETHER EVERY OTHER DAY
     Dates: end: 20111121
  3. BENEFIX [Suspect]
     Dosage: 2 VIALS OF 1890 I.U. TOGETHER DAILY FROM DAY 4 TO DAY 10
  4. BENEFIX [Suspect]
     Indication: FACTOR IX DEFICIENCY
     Dosage: 2 VIALS OF 1890 I.U. TOGETHER TWO TIMES A DAY
     Dates: start: 20111107

REACTIONS (3)
  - INJECTION SITE SWELLING [None]
  - INJECTION SITE WARMTH [None]
  - INJECTION SITE ERYTHEMA [None]
